FAERS Safety Report 6307487-8 (Version None)
Quarter: 2009Q3

REPORT INFORMATION
  Report Type: 
  Country: None (occurrence: None)
  Receive Date: 20090810
  Receipt Date: 20090729
  Transmission Date: 20100115
  Serious: Yes (Hospitalization)
  Sender: FDA-Public Use
  Company Number: 2009AL000703

PATIENT
  Age: 77 Year
  Sex: Female

DRUGS (9)
  1. DIGOXIN TABLETS, USP (AMIDE) [Suspect]
  2. THEOPHYLLINE [Concomitant]
  3. MORPHINE [Concomitant]
  4. LEVOTHYROXINE [Concomitant]
  5. COREG [Concomitant]
  6. PLAVIX [Concomitant]
  7. VYTORIN [Concomitant]
  8. LOVAZA [Concomitant]
  9. POTASSIUM CHLORIDE [Concomitant]

REACTIONS (8)
  - ANXIETY [None]
  - CHEST PAIN [None]
  - DYSPNOEA [None]
  - ECONOMIC PROBLEM [None]
  - HYPERHIDROSIS [None]
  - INJURY [None]
  - PAIN [None]
  - THERAPEUTIC AGENT TOXICITY [None]
